FAERS Safety Report 8877519 (Version 1)
Quarter: 2012Q4

REPORT INFORMATION
  Report Type: 
  Country: US (occurrence: US)
  Receive Date: 20121024
  Receipt Date: 20121024
  Transmission Date: 20130627
  Serious: Yes (Hospitalization, Other)
  Sender: FDA-Public Use
  Company Number: US-NOVOPROD-362375

PATIENT
  Age: 42 Year
  Sex: Male

DRUGS (1)
  1. NOVOLOG FLEXPEN [Suspect]
     Indication: TYPE 1 DIABETES MELLITUS
     Dosage: UNK
     Route: 058

REACTIONS (3)
  - Staphylococcal infection [Recovered/Resolved]
  - Nail operation [Recovered/Resolved]
  - Hyperglycaemic unconsciousness [Recovered/Resolved]
